FAERS Safety Report 10285869 (Version 1)
Quarter: 2014Q3

REPORT INFORMATION
  Report Type: Spontaneous
  Country: PT (occurrence: None)
  Receive Date: 20140703
  Receipt Date: 20140703
  Transmission Date: 20150326
  Serious: Yes (Other)
  Sender: FDA-Public Use
  Company Number: 2415504

PATIENT
  Age: 36 Year
  Sex: Female

DRUGS (5)
  1. EPHEDRINE [Suspect]
     Active Substance: EPHEDRINE
     Indication: PRODUCT USED FOR UNKNOWN INDICATION
  2. OXYTOCIN. [Concomitant]
     Active Substance: OXYTOCIN
  3. SUFENTANIL [Concomitant]
     Active Substance: SUFENTANIL
  4. ROPIVACAINE [Concomitant]
     Active Substance: ROPIVACAINE
  5. CEFAZOLIN [Suspect]
     Active Substance: CEFAZOLIN
     Indication: PRODUCT USED FOR UNKNOWN INDICATION

REACTIONS (5)
  - Angioedema [None]
  - Hypotension [None]
  - Erythema [None]
  - Caesarean section [None]
  - Exposure during pregnancy [None]
